FAERS Safety Report 8253708-4 (Version None)
Quarter: 2012Q2

REPORT INFORMATION
  Report Type: 
  Country: None (occurrence: None)
  Receive Date: 20120402
  Receipt Date: 20120313
  Transmission Date: 20120825
  Serious: No
  Sender: FDA-Public Use
  Company Number: US-AMGEN-USASP2012016470

PATIENT
  Age: 41 Year
  Sex: Female

DRUGS (2)
  1. ENBREL [Suspect]
     Indication: PSORIATIC ARTHROPATHY
     Dosage: 25 MG, 2 TIMES/WK
     Dates: start: 20021201
  2. ENBREL [Suspect]
     Indication: PSORIASIS

REACTIONS (4)
  - PAIN [None]
  - PSORIASIS [None]
  - INJECTION SITE RASH [None]
  - INJECTION SITE PAIN [None]
